FAERS Safety Report 8762615 (Version 2)
Quarter: 2021Q1

REPORT INFORMATION
  Report Type: Other
  Country: BR (occurrence: BR)
  Receive Date: 20120830
  Receipt Date: 20210302
  Transmission Date: 20210420
  Serious: Yes (Death, Other)
  Sender: FDA-Public Use
  Company Number: BR-ROCHE-1008986

PATIENT
  Age: 34 Year
  Sex: Female
  Weight: 56 kg

DRUGS (3)
  1. CEFTRIAXONE SODIUM. [Suspect]
     Active Substance: CEFTRIAXONE SODIUM
     Indication: TRACHEOBRONCHITIS
     Route: 065
  2. DIPYRONE [Suspect]
     Active Substance: DIPYRONE
     Indication: PRODUCT USED FOR UNKNOWN INDICATION
     Route: 065
  3. CEFTRIAXONE SODIUM. [Suspect]
     Active Substance: CEFTRIAXONE SODIUM
     Indication: PYELONEPHRITIS
     Dosage: SUSPENDED AFTER 15 DAYS
     Route: 030

REACTIONS (19)
  - Multiple organ dysfunction syndrome [Unknown]
  - Oral candidiasis [Unknown]
  - Oligohydramnios [Unknown]
  - Cardiogenic shock [Unknown]
  - Tracheobronchitis [Unknown]
  - Systemic inflammatory response syndrome [Unknown]
  - Phaeohyphomycosis [Fatal]
  - Cardiac failure congestive [Unknown]
  - Leukopenia [Unknown]
  - Septic shock [Unknown]
  - Acute kidney injury [Unknown]
  - Cardiac arrest [Unknown]
  - Metabolic acidosis [Unknown]
  - Postpartum sepsis [Unknown]
  - Bronchopulmonary aspergillosis [Fatal]
  - Agranulocytosis [Unknown]
  - Pneumonia necrotising [Unknown]
  - Exposure during pregnancy [Unknown]
  - Bone marrow failure [Unknown]
